FAERS Safety Report 4615900-7 (Version None)
Quarter: 2005Q1

REPORT INFORMATION
  Report Type: 
  Country: None (occurrence: None)
  Receive Date: 20050318
  Receipt Date: 20050314
  Transmission Date: 20050727
  Serious: Yes (Hospitalization)
  Sender: FDA-Public Use
  Company Number: USA-2005-0019348

PATIENT
  Age: 25 Week
  Sex: Male

DRUGS (3)
  1. POVIDONE IODINE [Suspect]
     Dosage: TID, TOPICAL
     Route: 061
  2. ANTIBIOTICS [Concomitant]
  3. POLYSPORIN (POLYMYXIN B SULFATE, GRAMICIDIN) [Concomitant]

REACTIONS (3)
  - DEVELOPMENTAL DELAY [None]
  - HYPOTHYROIDISM [None]
  - OVERDOSE [None]
